FAERS Safety Report 20373489 (Version 2)
Quarter: 2022Q1

REPORT INFORMATION
  Report Type: Spontaneous
  Country: IR (occurrence: IR)
  Receive Date: 20220125
  Receipt Date: 20220131
  Transmission Date: 20220423
  Serious: Yes (Other)
  Sender: FDA-Public Use
  Company Number: None

PATIENT
  Age: 70 Year
  Sex: Male

DRUGS (3)
  1. PREDNISOLONE [Suspect]
     Active Substance: PREDNISOLONE
     Indication: Pemphigus
     Dosage: 20 MILLIGRAM PER DAY
     Route: 048
  2. PREDNISOLONE [Suspect]
     Active Substance: PREDNISOLONE
     Dosage: UNK, THE PREDNISOLONE DOSE WAS INCREASED SINCE 4 WEEKS AGO DUE TO THE DISEASE FLARE
     Route: 065
  3. MYCOPHENOLATE MOFETIL [Suspect]
     Active Substance: MYCOPHENOLATE MOFETIL
     Indication: Pemphigus
     Dosage: 2 GRAM PER DAY
     Route: 065

REACTIONS (3)
  - Squamous cell carcinoma of the oral cavity [Recovered/Resolved]
  - Papilloma viral infection [Recovered/Resolved]
  - Off label use [Unknown]
